FAERS Safety Report 6526276-2 (Version None)
Quarter: 2009Q4

REPORT INFORMATION
  Report Type: 
  Country: None (occurrence: None)
  Receive Date: 20091228
  Receipt Date: 20091215
  Transmission Date: 20100525
  Serious: Yes (Other)
  Sender: FDA-Public Use
  Company Number: 234801J09USA

PATIENT
  Age: 30 Year
  Sex: Female

DRUGS (1)
  1. REBIF [Suspect]
     Indication: MULTIPLE SCLEROSIS
     Dosage: 44 MCG, 3 IN 1 WEEKS, SUBCUTANEOUS
     Route: 058
     Dates: start: 20060926

REACTIONS (6)
  - DIPLOPIA [None]
  - DIZZINESS [None]
  - EYE SWELLING [None]
  - IIIRD NERVE PARALYSIS [None]
  - MIGRAINE [None]
  - NEURALGIA [None]
